FAERS Safety Report 4734940-0 (Version None)
Quarter: 2005Q3

REPORT INFORMATION
  Report Type: 
  Country: None (occurrence: None)
  Receive Date: 20050729
  Receipt Date: 20050715
  Transmission Date: 20060218
  Serious: Yes (Other)
  Sender: FDA-Public Use
  Company Number: 2005103881

PATIENT
  Age: 45 Year
  Sex: Female
  Weight: 77.1115 kg

DRUGS (2)
  1. BENADRYL [Suspect]
     Indication: EAR CONGESTION
     Dosage: 2 KAPSEAL BID, ORAL
     Route: 048
     Dates: start: 20050714, end: 20050714
  2. LEVOTHYROXINE SODIUM [Concomitant]

REACTIONS (3)
  - EYELID OEDEMA [None]
  - SWELLING FACE [None]
  - TONGUE DISORDER [None]
